FAERS Safety Report 6382922-8 (Version None)
Quarter: 2009Q3

REPORT INFORMATION
  Report Type: 
  Country: None (occurrence: None)
  Receive Date: 20090930
  Receipt Date: 20090911
  Transmission Date: 20100115
  Serious: Yes (Death)
  Sender: FDA-Public Use
  Company Number: GR-ORACLE-2009S1000308

PATIENT
  Age: 38 Year
  Sex: Male

DRUGS (1)
  1. CUBICIN [Suspect]
     Indication: ABDOMINAL INFECTION
     Route: 042
     Dates: start: 20090219, end: 20090227

REACTIONS (2)
  - HEPATIC FAILURE [None]
  - MULTI-ORGAN FAILURE [None]
